FAERS Safety Report 5263574-7 (Version None)
Quarter: 2007Q1

REPORT INFORMATION
  Report Type: 
  Country: None (occurrence: None)
  Receive Date: 20070313
  Receipt Date: 20070307
  Transmission Date: 20070707
  Serious: Yes (Death)
  Sender: FDA-Public Use
  Company Number: JP-AVENTIS-200710626JP

PATIENT

DRUGS (2)
  1. AMARYL [Suspect]
     Route: 048
  2. AMARYL [Suspect]
     Route: 048

REACTIONS (1)
  - HYPOGLYCAEMIA [None]
